FAERS Safety Report 17341352 (Version 1)
Quarter: 2020Q1

REPORT INFORMATION
  Report Type: Spontaneous
  Country: CN (occurrence: CN)
  Receive Date: 20200129
  Receipt Date: 20200129
  Transmission Date: 20200409
  Serious: Yes (Other)
  Sender: FDA-Public Use
  Company Number: CN-JNJFOC-20200132907

PATIENT
  Sex: Female

DRUGS (7)
  1. RIVAROXABAN [Suspect]
     Active Substance: RIVAROXABAN
     Indication: CEREBROVASCULAR ACCIDENT PROPHYLAXIS
     Dosage: TOOK THE DOSE BETWEEN 10MG AND 15 MG
     Route: 048
  2. RIVAROXABAN [Suspect]
     Active Substance: RIVAROXABAN
     Dosage: 15 MG, QD
     Route: 048
  3. RIVAROXABAN [Suspect]
     Active Substance: RIVAROXABAN
     Dosage: 15 MG, QD
     Route: 048
     Dates: start: 202001
  4. RIVAROXABAN [Suspect]
     Active Substance: RIVAROXABAN
     Indication: ATRIAL FIBRILLATION
     Dosage: 10 MG, BID
     Route: 048
     Dates: start: 2019
  5. RIVAROXABAN [Suspect]
     Active Substance: RIVAROXABAN
     Indication: PULMONARY EMBOLISM
     Dosage: 15 MG, BID
     Route: 048
  6. RIVAROXABAN [Suspect]
     Active Substance: RIVAROXABAN
     Indication: CEREBRAL ARTERY EMBOLISM
     Dosage: 20 MG, QD
     Route: 048
     Dates: start: 2019
  7. RIVAROXABAN [Suspect]
     Active Substance: RIVAROXABAN
     Dosage: 20 MG, QD
     Route: 048

REACTIONS (18)
  - Atrial fibrillation [Unknown]
  - Chest discomfort [Unknown]
  - Pain [Unknown]
  - Gingival pain [Unknown]
  - Tooth socket haemorrhage [Unknown]
  - Musculoskeletal disorder [Unknown]
  - Fibrin D dimer increased [Recovering/Resolving]
  - Haematuria [Recovered/Resolved]
  - Toothache [Unknown]
  - Pain in extremity [Unknown]
  - Arthralgia [Unknown]
  - Chest pain [Unknown]
  - Discomfort [Unknown]
  - Extrasystoles [Unknown]
  - Gingival swelling [Unknown]
  - Intentional product misuse [Unknown]
  - Off label use [Unknown]
  - Intentional product misuse [Unknown]

NARRATIVE: CASE EVENT DATE: 202001
